FAERS Safety Report 8785645 (Version 1)
Quarter: 2012Q4

REPORT INFORMATION
  Report Type: Spontaneous
  Country: FR (occurrence: None)
  Receive Date: 20120831
  Receipt Date: 20120831
  Transmission Date: 20130627
  Serious: Yes (Life-Threatening, Hospitalization)
  Sender: FDA-Public Use
  Company Number: 2012P1054985

PATIENT
  Age: 55 Year
  Sex: Female

DRUGS (1)
  1. DILTIAZEM [Suspect]
     Dosage: 8.4 gm; x1; po
     Route: 048

REACTIONS (7)
  - Cardiogenic shock [None]
  - Suicide attempt [None]
  - Sinus bradycardia [None]
  - Atrioventricular block first degree [None]
  - Metabolic acidosis [None]
  - Renal failure acute [None]
  - Organ failure [None]
